FAERS Safety Report 17988631 (Version 1)
Quarter: 2020Q3

REPORT INFORMATION
  Report Type: Spontaneous
  Country: US (occurrence: US)
  Receive Date: 20200707
  Receipt Date: 20200707
  Transmission Date: 20201103
  Serious: No
  Sender: FDA-Public Use
  Company Number: US-PFIZER INC-2020258386

PATIENT
  Age: 77 Year
  Sex: Female
  Weight: 85.28 kg

DRUGS (1)
  1. HYDROCORTISONE ACETATE. [Suspect]
     Active Substance: HYDROCORTISONE ACETATE
     Indication: RASH
     Dosage: UNK

REACTIONS (1)
  - Drug ineffective [Unknown]
